FAERS Safety Report 9257193 (Version 1)
Quarter: 2013Q2

REPORT INFORMATION
  Report Type: Spontaneous
  Country: IS (occurrence: None)
  Receive Date: 20130419
  Receipt Date: 20130419
  Transmission Date: 20140414
  Serious: Yes (Other)
  Sender: FDA-Public Use
  Company Number: ENTC2013-0144

PATIENT
  Sex: 0

DRUGS (1)
  1. LEVODOPA-CARBIDOPA-ENTACAPONE [Suspect]
     Indication: PARKINSON^S DISEASE

REACTIONS (11)
  - Impulse-control disorder [None]
  - Libido increased [None]
  - Hypersexuality [None]
  - Sexually inappropriate behaviour [None]
  - Compulsive shopping [None]
  - Depression [None]
  - Poisoning deliberate [None]
  - Depressed mood [None]
  - Crying [None]
  - Decreased appetite [None]
  - Anhedonia [None]
